FAERS Safety Report 7527428-5 (Version None)
Quarter: 2011Q2

REPORT INFORMATION
  Report Type: 
  Country: None (occurrence: None)
  Receive Date: 20110603
  Receipt Date: 20110523
  Transmission Date: 20111010
  Serious: Yes (Hospitalization, Other)
  Sender: FDA-Public Use
  Company Number: JPI-P-015183

PATIENT
  Age: 67 Year
  Sex: Female
  Weight: 94.3482 kg

DRUGS (8)
  1. SIMVASTATIN [Concomitant]
  2. ARMODAFINIL [Concomitant]
  3. ENALAPRIL MALEATE [Concomitant]
  4. AMLODIPINE [Concomitant]
  5. HYDROCHLOROTHIAZIDE [Concomitant]
  6. ASPIRIN [Concomitant]
  7. XYREM [Suspect]
     Indication: NARCOLEPSY
     Dosage: ORAL; 9 GM (4.5 GM, 2 IN 1 D) ORAL;
     Route: 048
     Dates: start: 20030401
  8. XYREM [Suspect]
     Indication: SOMNOLENCE
     Dosage: ORAL; 9 GM (4.5 GM, 2 IN 1 D) ORAL;
     Route: 048
     Dates: start: 20030401

REACTIONS (1)
  - CORONARY ARTERY OCCLUSION [None]
